FAERS Safety Report 4427909-7 (Version None)
Quarter: 2004Q3

REPORT INFORMATION
  Report Type: 
  Country: None (occurrence: None)
  Receive Date: 20040813
  Receipt Date: 20040727
  Transmission Date: 20050211
  Serious: Yes (Death)
  Sender: FDA-Public Use
  Company Number: MEDI-0002073

PATIENT
  Age: 3 Month
  Sex: Female
  Weight: 4.0824 kg

DRUGS (1)
  1. SYNAGIS [Suspect]
     Indication: ANTIVIRAL PROPHYLAXIS
     Dosage: 0.62 ML, 1 IN 30 D, INTRAMUSCULAR
     Route: 030
     Dates: start: 20031216, end: 20031216

REACTIONS (2)
  - RESPIRATORY ARREST [None]
  - SUDDEN INFANT DEATH SYNDROME [None]
